FAERS Safety Report 14242590 (Version 1)
Quarter: 2017Q4

REPORT INFORMATION
  Report Type: Spontaneous
  Country: US (occurrence: US)
  Receive Date: 20171201
  Receipt Date: 20171201
  Transmission Date: 20180321
  Serious: No
  Sender: FDA-Public Use
  Company Number: US-BAYER-2017-232146

PATIENT
  Age: 56 Year
  Sex: Female
  Weight: 103.99 kg

DRUGS (2)
  1. DULCOLAX PICOSULFAT [Concomitant]
     Active Substance: SODIUM PICOSULFATE
     Dosage: UNK
  2. MIRALAX [Suspect]
     Active Substance: POLYETHYLENE GLYCOL 3350
     Dosage: 1 DF, BID
     Route: 048

REACTIONS (2)
  - Product use issue [Unknown]
  - Drug effect variable [Unknown]

NARRATIVE: CASE EVENT DATE: 201711
